FAERS Safety Report 9586129 (Version 1)
Quarter: 2013Q4

REPORT INFORMATION
  Report Type: Spontaneous
  Country: US (occurrence: None)
  Receive Date: 20131001
  Receipt Date: 20131001
  Transmission Date: 20140711
  Serious: Yes (Other)
  Sender: FDA-Public Use
  Company Number: GER/UKI/13/0034770

PATIENT
  Age: 34 Year
  Sex: Female

DRUGS (10)
  1. OMEPRAZOLE [Suspect]
     Indication: REGURGITATION
     Route: 048
     Dates: start: 20130806, end: 20130816
  2. OMEPRAZOLE [Suspect]
     Indication: DYSPEPSIA
     Route: 048
     Dates: start: 20130806, end: 20130816
  3. CLOZARIL [Suspect]
     Indication: SCHIZOAFFECTIVE DISORDER
     Route: 048
     Dates: start: 20130702
  4. GLIMEPIRIDE [Suspect]
     Route: 048
     Dates: start: 20130802, end: 20130816
  5. BECLOMETHASONE DIPROPIONATE [Concomitant]
  6. LAXIDE (FUROSEMIDE) [Concomitant]
  7. METFORMIN [Concomitant]
  8. OLANZAPINE [Concomitant]
  9. PROMETHAZINE [Concomitant]
  10. SODIUM VALPROATE [Concomitant]

REACTIONS (6)
  - Alanine aminotransferase increased [None]
  - Antipsychotic drug level increased [None]
  - Differential white blood cell count abnormal [None]
  - Eosinophil count increased [None]
  - Dizziness [None]
  - Nausea [None]
